FAERS Safety Report 4653859-7 (Version None)
Quarter: 2005Q2

REPORT INFORMATION
  Report Type: 
  Country: None (occurrence: None)
  Receive Date: 20050504
  Receipt Date: 20050418
  Transmission Date: 20051028
  Serious: Yes (Hospitalization)
  Sender: FDA-Public Use
  Company Number: 230005E05USA

PATIENT
  Age: 31 Year
  Sex: Female

DRUGS (11)
  1. REBIF [Suspect]
     Indication: MULTIPLE SCLEROSIS
     Dosage: 44 MCG, 3 IN 1 WEEKS, SUBCUTANEOUS
     Route: 058
     Dates: start: 20040818
  2. SODIUM CHLORIDE [Concomitant]
  3. OXYBUTYNIN [Concomitant]
  4. CELECOXIB [Concomitant]
  5. VENLAFAXINE HCL [Concomitant]
  6. LYSINE [Concomitant]
  7. PARACETAMOL [Concomitant]
  8. NAPROXEN [Concomitant]
  9. VICODIN [Concomitant]
  10. TOPIRAMATE [Concomitant]
  11. IBUPROFEN [Concomitant]

REACTIONS (4)
  - AFFECTIVE DISORDER [None]
  - CONDITION AGGRAVATED [None]
  - DEPRESSION [None]
  - SELF-INJURIOUS IDEATION [None]
